FAERS Safety Report 5837084-X (Version None)
Quarter: 2008Q3

REPORT INFORMATION
  Report Type: 
  Country: None (occurrence: None)
  Receive Date: 20080807
  Receipt Date: 20080108
  Transmission Date: 20090109
  Serious: No
  Sender: FDA-Public Use
  Company Number: A0701938A

PATIENT
  Age: 62 Year
  Sex: Female

DRUGS (2)
  1. TAGAMET HB 200 [Suspect]
     Dates: start: 20080105, end: 20080106
  2. KLONOPIN [Concomitant]

REACTIONS (2)
  - RASH [None]
  - URTICARIA [None]
